FAERS Safety Report 12798789 (Version 1)
Quarter: 2016Q3

REPORT INFORMATION
  Report Type: Spontaneous
  Country: US (occurrence: US)
  Receive Date: 20160930
  Receipt Date: 20160930
  Transmission Date: 20161109
  Serious: Yes (Hospitalization, Other)
  Sender: FDA-Public Use
  Company Number: US-AMGEN-USASP2016131873

PATIENT
  Sex: Male
  Weight: 63.95 kg

DRUGS (4)
  1. PROCRIT [Suspect]
     Active Substance: ERYTHROPOIETIN
     Indication: ANAEMIA
     Dosage: 10,000 UNITS, EVERY OTHER WEEK
     Route: 065
     Dates: end: 2016
  2. PROCRIT [Suspect]
     Active Substance: ERYTHROPOIETIN
     Dosage: 40,000 UNITS, WEEKLY
     Route: 065
     Dates: start: 2016
  3. LEVEMIR [Concomitant]
     Active Substance: INSULIN DETEMIR
     Indication: DIABETES MELLITUS
     Dosage: UNK
  4. HUMALOG [Concomitant]
     Active Substance: INSULIN LISPRO
     Indication: DIABETES MELLITUS
     Dosage: UNK

REACTIONS (6)
  - Drug effect decreased [Recovered/Resolved]
  - Suicidal behaviour [Unknown]
  - Hospice care [Unknown]
  - Pneumonia [Unknown]
  - Haemoglobin abnormal [Unknown]
  - Lymphoma [Unknown]

NARRATIVE: CASE EVENT DATE: 2016
